FAERS Safety Report 9645515 (Version 1)
Quarter: 2013Q4

REPORT INFORMATION
  Report Type: Report from Study
  Country: US (occurrence: US)
  Receive Date: 20131025
  Receipt Date: 20131025
  Transmission Date: 20140711
  Serious: Yes (Hospitalization)
  Sender: FDA-Public Use
  Company Number: US-ROCHE-1290805

PATIENT
  Sex: Female
  Weight: 35.2 kg

DRUGS (4)
  1. SOMATROPIN [Suspect]
     Indication: PRODUCT USED FOR UNKNOWN INDICATION
     Route: 058
     Dates: start: 20130404
  2. TYLENOL [Concomitant]
     Route: 048
  3. MOTRIN [Concomitant]
     Route: 048
  4. STRATTERA [Concomitant]
     Route: 048

REACTIONS (4)
  - Supraventricular tachycardia [Recovered/Resolved]
  - Chest pain [Unknown]
  - Dyspnoea [Unknown]
  - Arrhythmia [Unknown]
